FAERS Safety Report 6646616-3 (Version None)
Quarter: 2010Q1

REPORT INFORMATION
  Report Type: 
  Country: None (occurrence: None)
  Receive Date: 20100317
  Receipt Date: 20100309
  Transmission Date: 20100710
  Serious: Yes (Other)
  Sender: FDA-Public Use
  Company Number: 530142

PATIENT
  Age: 69 Year
  Sex: Female

DRUGS (10)
  1. (GLYCERYL TRINITRATE) [Suspect]
     Indication: CHEST PAIN
     Dosage: 10 UG/MIN, INTRAVENOUS DRIP
     Route: 041
  2. ASPIRIN [Concomitant]
  3. OMEPRAZOLE [Concomitant]
  4. METOPROLOL SUCCINATE [Concomitant]
  5. SIMVASTATIN [Concomitant]
  6. BUDESONIDE [Concomitant]
  7. IBANDRONATE SODIUM [Concomitant]
  8. CALCIUM CARBONATE [Concomitant]
  9. (LACTASE) [Concomitant]
  10. NITROGLYCERIN [Concomitant]

REACTIONS (2)
  - ANAPHYLACTIC REACTION [None]
  - SKIN TEST POSITIVE [None]
